FAERS Safety Report 5860322-4 (Version None)
Quarter: 2008Q3

REPORT INFORMATION
  Report Type: 
  Country: None (occurrence: None)
  Receive Date: 20080827
  Receipt Date: 20080122
  Transmission Date: 20090109
  Serious: No
  Sender: FDA-Public Use
  Company Number: US-ABBOTT-07P-163-0376125-00

PATIENT
  Sex: Male
  Weight: 103.5 kg

DRUGS (3)
  1. COATED PDS [Suspect]
     Indication: BLOOD CHOLESTEROL ABNORMAL
     Route: 048
     Dates: start: 20070401, end: 20070601
  2. COATED PDS [Suspect]
     Indication: LOW DENSITY LIPOPROTEIN ABNORMAL
     Route: 048
     Dates: start: 20070701
  3. CARVEDILOL [Concomitant]
     Indication: VENTRICULAR EXTRASYSTOLES

REACTIONS (4)
  - CHILLS [None]
  - FLUSHING [None]
  - PARAESTHESIA [None]
  - RASH ERYTHEMATOUS [None]
